FAERS Safety Report 15180215 (Version 1)
Quarter: 2018Q3

REPORT INFORMATION
  Report Type: Spontaneous
  Country: JP (occurrence: JP)
  Receive Date: 20180723
  Receipt Date: 20180723
  Transmission Date: 20181010
  Serious: Yes (Death, Other)
  Sender: FDA-Public Use
  Company Number: JP-ELI_LILLY_AND_COMPANY-JP201807009760

PATIENT
  Age: 73 Year
  Sex: Male

DRUGS (2)
  1. ERBITUX [Suspect]
     Active Substance: CETUXIMAB
     Indication: LARYNGEAL CANCER
     Dosage: UNK, UNKNOWN
     Route: 041
     Dates: start: 201709
  2. PACLITAXEL. [Concomitant]
     Active Substance: PACLITAXEL
     Indication: LARYNGEAL CANCER
     Dosage: UNK

REACTIONS (3)
  - Device related infection [Unknown]
  - Off label use [Unknown]
  - Cardiac failure [Fatal]

NARRATIVE: CASE EVENT DATE: 2018
